FAERS Safety Report 6344035-0 (Version None)
Quarter: 2009Q3

REPORT INFORMATION
  Report Type: 
  Country: None (occurrence: None)
  Receive Date: 20090904
  Receipt Date: 20090904
  Transmission Date: 20100115
  Serious: Yes (Hospitalization, Other)
  Sender: FDA-Public Use
  Company Number: None

PATIENT
  Age: 55 Year
  Sex: Male

DRUGS (2)
  1. CIPROFLAXACIN [Suspect]
     Indication: URINARY TRACT INFECTION
  2. IBUPROFEN [Concomitant]

REACTIONS (3)
  - INJURY [None]
  - LIGAMENT INJURY [None]
  - TENDON RUPTURE [None]
